FAERS Safety Report 9328813 (Version 1)
Quarter: 2013Q2

REPORT INFORMATION
  Report Type: Spontaneous
  Country: US (occurrence: US)
  Receive Date: 20130604
  Receipt Date: 20130604
  Transmission Date: 20140414
  Serious: No
  Sender: FDA-Public Use
  Company Number: US-SANOFI-AVENTIS-2013SA015876

PATIENT
  Age: 78 Year
  Sex: Female
  Weight: 68.03 kg

DRUGS (7)
  1. LANTUS SOLOSTAR [Suspect]
     Indication: TYPE 2 DIABETES MELLITUS
     Dosage: DOSE:10 UNIT(S)
     Route: 051
     Dates: start: 20130122
  2. SOLOSTAR [Suspect]
     Indication: TYPE 2 DIABETES MELLITUS
     Dates: start: 20130122
  3. METFORMIN [Concomitant]
     Indication: DIABETES MELLITUS
     Dates: start: 1995
  4. GLIPIZIDE [Concomitant]
     Indication: DIABETES MELLITUS
     Dates: start: 1995
  5. SIMVASTATIN [Concomitant]
     Indication: BLOOD CHOLESTEROL
     Dates: start: 2010
  6. VITAMIN D3 [Concomitant]
     Indication: BONE LOSS
     Dates: start: 2004
  7. LISINOPRIL [Concomitant]
     Indication: BLOOD PRESSURE
     Dates: start: 2004

REACTIONS (2)
  - Dizziness [Not Recovered/Not Resolved]
  - Blood glucose increased [Not Recovered/Not Resolved]
